FAERS Safety Report 5737865-7 (Version None)
Quarter: 2008Q2

REPORT INFORMATION
  Report Type: 
  Country: None (occurrence: None)
  Receive Date: 20080512
  Receipt Date: 20080512
  Transmission Date: 20081010
  Serious: Yes (Life-Threatening, Hospitalization)
  Sender: FDA-Public Use
  Company Number: None

PATIENT
  Sex: Female
  Weight: 68.9467 kg

DRUGS (3)
  1. PROGESTERONE [Suspect]
     Indication: INFERTILITY
     Dosage: 25 MG DAILY IM
     Route: 030
  2. ESTRADIOL [Suspect]
     Indication: INFERTILITY
     Dosage: 0.1MG DAILY TRANSDERMAL PATCH
     Route: 062
  3. MEDROL [Concomitant]

REACTIONS (2)
  - DEEP VEIN THROMBOSIS [None]
  - PULMONARY EMBOLISM [None]
